FAERS Safety Report 5835926-5 (Version None)
Quarter: 2008Q3

REPORT INFORMATION
  Report Type: 
  Country: None (occurrence: None)
  Receive Date: 20080806
  Receipt Date: 20080728
  Transmission Date: 20090109
  Serious: Yes (Death)
  Sender: FDA-Public Use
  Company Number: FR-PFIZER INC-2006134386

PATIENT
  Sex: Male
  Weight: 74 kg

DRUGS (14)
  1. SU-011,248 [Suspect]
     Indication: MESOTHELIOMA MALIGNANT ADVANCED
     Route: 048
     Dates: start: 20061020, end: 20061025
  2. CAMPTOSAR [Suspect]
     Indication: MESOTHELIOMA MALIGNANT ADVANCED
     Route: 042
     Dates: start: 20061020, end: 20061020
  3. NEURONTIN [Concomitant]
     Route: 048
  4. CORTANCYL [Concomitant]
     Route: 048
     Dates: start: 20061018
  5. MOPRAL [Concomitant]
     Route: 048
  6. METHADONE HCL [Concomitant]
     Route: 048
     Dates: start: 20061024, end: 20061029
  7. TAZOCILLINE [Concomitant]
     Route: 042
     Dates: start: 20061025, end: 20061030
  8. CIFLOX [Concomitant]
     Route: 042
     Dates: start: 20061025, end: 20061030
  9. BACTRIM [Concomitant]
     Route: 042
     Dates: start: 20061025, end: 20061030
  10. PRIMPERAN TAB [Concomitant]
     Route: 042
     Dates: start: 20061028, end: 20061030
  11. LOVENOX [Concomitant]
     Route: 058
     Dates: start: 20061025, end: 20061030
  12. PLASMION [Concomitant]
     Route: 048
     Dates: start: 20061024, end: 20061029
  13. RIVOTRIL [Concomitant]
     Route: 042
     Dates: start: 20061029, end: 20061030
  14. ACETAMINOPHEN [Concomitant]
     Route: 042
     Dates: start: 20061028, end: 20061030

REACTIONS (1)
  - NERVOUS SYSTEM DISORDER [None]
